FAERS Safety Report 18661265 (Version 2)
Quarter: 2020Q4

REPORT INFORMATION
  Report Type: Spontaneous
  Country: SV (occurrence: SV)
  Receive Date: 20201224
  Receipt Date: 20201231
  Transmission Date: 20210114
  Serious: Yes (Death, Other)
  Sender: FDA-Public Use
  Company Number: NVSC2020SV341584

PATIENT
  Age: 49 Year
  Sex: Male

DRUGS (1)
  1. GLIVEC [Suspect]
     Active Substance: IMATINIB MESYLATE
     Indication: CHRONIC MYELOID LEUKAEMIA
     Dosage: 400 MG (4 X 100 MG)
     Route: 065

REACTIONS (4)
  - Malignant neoplasm progression [Fatal]
  - Hypotension [Fatal]
  - Dyspnoea [Fatal]
  - Chronic myeloid leukaemia [Fatal]

NARRATIVE: CASE EVENT DATE: 20201220
